FAERS Safety Report 12157066 (Version 1)
Quarter: 2016Q1

REPORT INFORMATION
  Report Type: Spontaneous
  Country: US (occurrence: US)
  Receive Date: 20160307
  Receipt Date: 20160307
  Transmission Date: 20160526
  Serious: No
  Sender: FDA-Public Use
  Company Number: US-AMGEN-USASP2016026473

PATIENT
  Age: 39 Year
  Sex: Male

DRUGS (2)
  1. ENBREL [Suspect]
     Active Substance: ETANERCEPT
     Indication: RHEUMATOID ARTHRITIS
     Dosage: 50 MG, QWK
     Route: 065
     Dates: end: 201602
  2. AMOXICILLIN. [Concomitant]
     Active Substance: AMOXICILLIN

REACTIONS (5)
  - Feeling abnormal [Not Recovered/Not Resolved]
  - Tooth disorder [Not Recovered/Not Resolved]
  - Bone graft [Not Recovered/Not Resolved]
  - Dizziness [Not Recovered/Not Resolved]
  - Injection site pain [Not Recovered/Not Resolved]

NARRATIVE: CASE EVENT DATE: 201602
